FAERS Safety Report 7080425-9 (Version None)
Quarter: 2010Q4

REPORT INFORMATION
  Report Type: 
  Country: None (occurrence: None)
  Receive Date: 20101103
  Receipt Date: 20101027
  Transmission Date: 20110411
  Serious: Yes (Life-Threatening, Hospitalization, Other)
  Sender: FDA-Public Use
  Company Number: CA-TYCO HEALTHCARE/MALLINCKRODT-T201001623

PATIENT
  Sex: Female

DRUGS (11)
  1. ULTRA-TECHNEKOW [Suspect]
     Indication: CHEST PAIN
     Dosage: 414.4 MBQ, SINGLE
     Route: 042
     Dates: start: 20100602, end: 20100602
  2. ULTRA-TECHNEKOW [Suspect]
     Dosage: 1207.1 MBQ, SINGLE
     Route: 042
     Dates: start: 20100602, end: 20100602
  3. TETROFOSMIN [Suspect]
     Indication: CHEST PAIN
     Dosage: .0034 MG
     Route: 042
     Dates: start: 20100602, end: 20100602
  4. TETROFOSMIN [Suspect]
     Dosage: .0128 MG
     Route: 042
     Dates: start: 20100602, end: 20100602
  5. PERSANTINE [Suspect]
     Dosage: 46.5 MG
     Route: 042
     Dates: start: 20100602, end: 20100602
  6. AMINOPHYLLINE [Suspect]
     Dosage: 100 MG
     Route: 042
     Dates: start: 20100602, end: 20100602
  7. ANTIBIOTICS [Concomitant]
     Indication: CELLULITIS
     Dosage: UNK
  8. NEXIUM [Concomitant]
     Dosage: 40 MG, QD
     Route: 048
  9. SYNTHROID [Concomitant]
     Dosage: 75 MCG QD
     Route: 048
  10. HYDROCHLOROTHIAZIDE [Concomitant]
     Dosage: 12.5 MG, QD
     Route: 048
  11. VITAMINS                           /90003601/ [Concomitant]

REACTIONS (3)
  - INJECTION SITE NECROSIS [None]
  - RENAL FAILURE [None]
  - TOE AMPUTATION [None]
